FAERS Safety Report 20054088 (Version 2)
Quarter: 2022Q4

REPORT INFORMATION
  Report Type: Spontaneous
  Country: US (occurrence: US)
  Receive Date: 20211110
  Receipt Date: 20221108
  Transmission Date: 20230113
  Serious: Yes (Life-Threatening, Hospitalization)
  Sender: FDA-Public Use
  Company Number: US-MYLANLABS-2021M1081751

PATIENT
  Age: 20 Year
  Sex: Female

DRUGS (9)
  1. ETOPOSIDE [Interacting]
     Active Substance: ETOPOSIDE
     Indication: Gestational trophoblastic tumour
     Dosage: 100 MILLIGRAM/SQ. METER, (CYCLE 1, DAY 1 [C1D1])
     Route: 065
  2. CISPLATIN [Suspect]
     Active Substance: CISPLATIN
     Indication: Gestational trophoblastic tumour
     Dosage: 20 MILLIGRAM/SQ. METER, (CYCLE 1, DAY 1 [C1D1])
     Route: 065
  3. SODIUM BICARBONATE [Suspect]
     Active Substance: SODIUM BICARBONATE
     Indication: Acidosis
     Dosage: 15 MMOL/L, INFUSION
     Route: 065
  4. SODIUM BICARBONATE [Suspect]
     Active Substance: SODIUM BICARBONATE
     Dosage: 26 MMOL/L, INFUSION
     Route: 042
  5. HEPARIN [Concomitant]
     Active Substance: HEPARIN SODIUM
     Indication: Product used for unknown indication
     Dosage: DRIP, INFUSION
     Route: 042
  6. METHOTREXATE [Concomitant]
     Active Substance: METHOTREXATE
     Indication: Gestational trophoblastic tumour
     Dosage: 300 MILLIGRAM/SQ. METER, ON DAY 1
     Route: 065
  7. DACTINOMYCIN [Concomitant]
     Active Substance: DACTINOMYCIN
     Indication: Gestational trophoblastic tumour
     Dosage: 0.5 MILLIGRAM, ON DAY 1 AND DAY 2
     Route: 065
  8. CYCLOPHOSPHAMIDE [Concomitant]
     Active Substance: CYCLOPHOSPHAMIDE
     Indication: Gestational trophoblastic tumour
     Dosage: 600 MILLIGRAM/SQ. METER, ON DAY 8
     Route: 065
  9. VINCRISTINE [Concomitant]
     Active Substance: VINCRISTINE
     Indication: Gestational trophoblastic tumour
     Dosage: 1 MILLIGRAM/SQ. METER, ON DAY 8
     Route: 065

REACTIONS (8)
  - Tachycardia [Unknown]
  - Hypoxia [Unknown]
  - Hypotension [Unknown]
  - Drug-device interaction [Unknown]
  - Device failure [Unknown]
  - Thrombocytopenia [Unknown]
  - Neutropenia [Unknown]
  - Intracardiac thrombus [Unknown]
